FAERS Safety Report 25348146 (Version 8)
Quarter: 2025Q4

REPORT INFORMATION
  Report Type: Spontaneous
  Country: JP (occurrence: JP)
  Receive Date: 20250522
  Receipt Date: 20251215
  Transmission Date: 20260118
  Serious: Yes (Death, Life-Threatening, Other)
  Sender: JAZZ
  Company Number: JP-JAZZ PHARMACEUTICALS-2025-JP-013116

PATIENT
  Age: 73 Year
  Sex: Female
  Weight: 42.7 kg

DRUGS (4)
  1. VYXEOS [Suspect]
     Active Substance: CYTARABINE\DAUNORUBICIN
     Indication: Acute myeloid leukaemia
     Dosage: UNK
     Dates: start: 20250409, end: 20250409
  2. VYXEOS [Suspect]
     Active Substance: CYTARABINE\DAUNORUBICIN
     Dosage: 200 UNITS PER DAY
     Dates: start: 20250409, end: 20250413
  3. VYXEOS [Suspect]
     Active Substance: CYTARABINE\DAUNORUBICIN
     Dosage: UNK
     Dates: start: 20250411, end: 20250411
  4. VYXEOS [Suspect]
     Active Substance: CYTARABINE\DAUNORUBICIN
     Dosage: UNK
     Dates: start: 20250413, end: 20250413

REACTIONS (3)
  - Sudden death [Fatal]
  - Bone marrow failure [Not Recovered/Not Resolved]
  - Pulmonary toxicity [Recovering/Resolving]

NARRATIVE: CASE EVENT DATE: 20250512
